FAERS Safety Report 18034333 (Version 1)
Quarter: 2020Q3

REPORT INFORMATION
  Report Type: Spontaneous
  Country: US (occurrence: US)
  Receive Date: 20200716
  Receipt Date: 20200716
  Transmission Date: 20201103
  Serious: No
  Sender: FDA-Public Use
  Company Number: US-TEVA-2020-US-1800830

PATIENT
  Sex: Female

DRUGS (1)
  1. AZITHROMYCIN TEVA [Suspect]
     Active Substance: AZITHROMYCIN
     Indication: SINUSITIS
     Dosage: START DATE: FROM LAST 7 YEARS
     Route: 065

REACTIONS (3)
  - Drug ineffective [Unknown]
  - Product taste abnormal [Unknown]
  - Product quality issue [Unknown]

NARRATIVE: CASE EVENT DATE: 2020
